FAERS Safety Report 13871912 (Version 1)
Quarter: 2017Q3

REPORT INFORMATION
  Report Type: Spontaneous
  Country: CH (occurrence: CH)
  Receive Date: 20170816
  Receipt Date: 20170816
  Transmission Date: 20171127
  Serious: Yes (Hospitalization)
  Sender: FDA-Public Use
  Company Number: CH-PFIZER INC-2017348490

PATIENT
  Age: 77 Year
  Sex: Female

DRUGS (10)
  1. ZYPREXA [Interacting]
     Active Substance: OLANZAPINE
     Dosage: 5 MG, UNK
     Route: 048
     Dates: start: 20170709, end: 20170709
  2. TEMESTA [Interacting]
     Active Substance: LORAZEPAM
     Dosage: 7.5 MG, 2X/DAY
     Route: 048
     Dates: start: 20170711, end: 20170711
  3. TRAMAL [Interacting]
     Active Substance: TRAMADOL
     Indication: BACK PAIN
     Dosage: 50 MG, UNK
     Route: 048
  4. TEMESTA [Suspect]
     Active Substance: LORAZEPAM
     Dosage: 7.5 MG, 3X/DAY
     Route: 048
     Dates: start: 20170707, end: 20170707
  5. BRINTELLIX [Interacting]
     Active Substance: VORTIOXETINE HYDROBROMIDE
     Dosage: 5 MG, 1X/DAY (CURRENT TREATMENT AT HOME, START DATE NOT KNOWN, SINCE AT LEAST APR2017)
     Route: 048
     Dates: end: 20170708
  6. TEMESTA [Interacting]
     Active Substance: LORAZEPAM
     Dosage: 7.5 MG, 1X/DAY
     Route: 048
     Dates: start: 20170708, end: 20170708
  7. COVERSUM N COMBI [Concomitant]
     Dosage: UNK
  8. HALDOL [Interacting]
     Active Substance: HALOPERIDOL
     Dosage: 0.5 MG, UNK
     Route: 048
     Dates: start: 20170708, end: 20170708
  9. DISTRANEURIN /00027501/ [Interacting]
     Active Substance: CLOMETHIAZOLE
     Dosage: 192 MG, 1X/DAY
     Route: 048
     Dates: start: 20170708, end: 20170709
  10. NEXIUM [Concomitant]
     Active Substance: ESOMEPRAZOLE MAGNESIUM
     Dosage: UNK

REACTIONS (8)
  - Drug interaction [Recovered/Resolved]
  - Tachycardia [Recovered/Resolved]
  - Agitation [Recovered/Resolved]
  - Hyponatraemia [Recovered/Resolved]
  - Confusional state [Recovered/Resolved]
  - Fall [Recovering/Resolving]
  - Confusional state [Recovered/Resolved]
  - Urinary retention [Recovering/Resolving]

NARRATIVE: CASE EVENT DATE: 201707
